FAERS Safety Report 9419882 (Version 1)
Quarter: 2013Q3

REPORT INFORMATION
  Report Type: Spontaneous
  Country: US (occurrence: None)
  Receive Date: 20130723
  Receipt Date: 20130723
  Transmission Date: 20140515
  Serious: Yes (Other)
  Sender: FDA-Public Use
  Company Number: None

PATIENT
  Age: 65 Year
  Sex: Male
  Weight: 94.35 kg

DRUGS (1)
  1. ADALIMUMAB [Suspect]
     Indication: PSORIASIS
     Dosage: EVERY 14 DAYS
     Route: 058

REACTIONS (1)
  - Tuberculosis [None]
